FAERS Safety Report 9982987 (Version 1)
Quarter: 2014Q1

REPORT INFORMATION
  Report Type: Report from Study
  Country: US (occurrence: US)
  Receive Date: 20140307
  Receipt Date: 20140307
  Transmission Date: 20141002
  Serious: No
  Sender: FDA-Public Use
  Company Number: US-ABBVIE-13P-163-1176889-00

PATIENT
  Age: 30 Year
  Sex: Female

DRUGS (9)
  1. HUMIRA [Suspect]
     Indication: PSORIATIC ARTHROPATHY
     Dates: start: 20130907
  2. METFORMIN [Concomitant]
     Indication: DIABETES MELLITUS
  3. KLONOPIN [Concomitant]
     Indication: AFFECTIVE DISORDER
     Dosage: AT BEDTIME
  4. FOLIC ACID [Concomitant]
     Indication: PRODUCT USED FOR UNKNOWN INDICATION
  5. VITAMIN D [Concomitant]
     Indication: PRODUCT USED FOR UNKNOWN INDICATION
     Dosage: 50 UNITS WEEKLY ^BECAUSE THE PATIENT DOESN^T DRINK MILK^
  6. BUPROPION [Concomitant]
     Indication: DEPRESSION
  7. DIVALPROEX [Concomitant]
     Indication: BIPOLAR DISORDER
  8. VOLTAREN [Concomitant]
     Indication: ARTHRITIS
  9. FLEXERIL [Concomitant]
     Indication: MUSCLE SPASMS
     Dosage: AS NEEDED

REACTIONS (3)
  - Back pain [Recovered/Resolved]
  - Arthralgia [Recovered/Resolved]
  - Pain in extremity [Recovered/Resolved]
